FAERS Safety Report 21985070 (Version 2)
Quarter: 2023Q1

REPORT INFORMATION
  Report Type: Spontaneous
  Country: JP (occurrence: JP)
  Receive Date: 20230213
  Receipt Date: 20230309
  Transmission Date: 20230417
  Serious: Yes (Hospitalization, Other)
  Sender: FDA-Public Use
  Company Number: JP-SA-2023SA048238

PATIENT
  Age: 46 Year
  Sex: Male
  Weight: 72 kg

DRUGS (3)
  1. CAPECITABINE [Suspect]
     Active Substance: CAPECITABINE
     Indication: Anal cancer stage IV
     Dosage: UNK UNK, QCY
     Dates: start: 202103
  2. OXALIPLATIN [Suspect]
     Active Substance: OXALIPLATIN
     Indication: Anal cancer stage IV
     Dosage: UNK UNK,QCY
     Dates: start: 202103
  3. BEVACIZUMAB [Concomitant]
     Active Substance: BEVACIZUMAB
     Indication: Anal cancer stage IV
     Dosage: UNK UNK, QCY
     Dates: start: 202103

REACTIONS (2)
  - Ureteric stenosis [Unknown]
  - Ileus paralytic [Unknown]

NARRATIVE: CASE EVENT DATE: 20210101
